FAERS Safety Report 15811632 (Version 1)
Quarter: 2019Q1

REPORT INFORMATION
  Report Type: Spontaneous
  Country: US (occurrence: US)
  Receive Date: 20190111
  Receipt Date: 20190111
  Transmission Date: 20190417
  Serious: No
  Sender: FDA-Public Use
  Company Number: US-PFIZER INC-2019011640

PATIENT
  Age: 62 Year
  Sex: Female
  Weight: 88.45 kg

DRUGS (3)
  1. CYMBALTA [Concomitant]
     Active Substance: DULOXETINE HYDROCHLORIDE
     Indication: PARAPLEGIA
     Dosage: 60 MG, 1X/DAY
     Route: 048
  2. BACLOFEN. [Concomitant]
     Active Substance: BACLOFEN
     Indication: PARAPLEGIA
     Dosage: 20 MG, 2X/DAY (TWO 10 MG TABLETS IN THE MORNING AND TWO AT NIGHT)
     Route: 048
     Dates: start: 1991
  3. GABAPENTIN. [Suspect]
     Active Substance: GABAPENTIN
     Dosage: 400 MG, 4X/DAY
     Dates: start: 1991

REACTIONS (1)
  - Drug ineffective [Unknown]
